FAERS Safety Report 24431609 (Version 2)
Quarter: 2024Q4

REPORT INFORMATION
  Report Type: Spontaneous
  Country: BR (occurrence: BR)
  Receive Date: 20241014
  Receipt Date: 20241016
  Transmission Date: 20250115
  Serious: Yes (Other)
  Sender: NOVARTIS
  Company Number: BR-002147023-NVSC2024BR160300

PATIENT
  Sex: Female
  Weight: 52 kg

DRUGS (2)
  1. VOTRIENT [Suspect]
     Active Substance: PAZOPANIB HYDROCHLORIDE
     Indication: Desmoid tumour
     Dosage: 2 DOSAGE FORM, QD (2 TABLETS OF 400 MG)
     Route: 048
     Dates: start: 202010
  2. VOTRIENT [Suspect]
     Active Substance: PAZOPANIB HYDROCHLORIDE
     Indication: Cervix carcinoma

REACTIONS (9)
  - Diarrhoea [Recovered/Resolved]
  - Pain [Unknown]
  - Discomfort [Unknown]
  - Nausea [Recovered/Resolved]
  - Hair colour changes [Unknown]
  - Eyelash discolouration [Unknown]
  - Skin discolouration [Unknown]
  - Drug ineffective [Unknown]
  - Product use in unapproved indication [Unknown]

NARRATIVE: CASE EVENT DATE: 20210101
